FAERS Safety Report 8012899-0 (Version None)
Quarter: 2011Q4

REPORT INFORMATION
  Report Type: 
  Country: None (occurrence: None)
  Receive Date: 20111223
  Receipt Date: 20111206
  Transmission Date: 20120403
  Serious: Yes (Other)
  Sender: FDA-Public Use
  Company Number: 20110433

PATIENT
  Age: 64 Year
  Sex: Female

DRUGS (4)
  1. KENALOG [Suspect]
     Indication: URTICARIA
     Dosage: 20 MG/ 0.5CC X 8
     Dates: start: 20090101, end: 20110311
  2. TENORMIN [Concomitant]
  3. DEXAMETHASONE SODIUM PHOSPHATE [Suspect]
     Indication: URTICARIA
     Dosage: 120 MG/ 0.5CC X 8
     Dates: start: 20090101, end: 20110311
  4. PREMARIN [Concomitant]

REACTIONS (17)
  - WRONG TECHNIQUE IN DRUG USAGE PROCESS [None]
  - PRURITUS [None]
  - INJECTION SITE ANAESTHESIA [None]
  - PARAESTHESIA [None]
  - SKIN DISCOLOURATION [None]
  - INJECTION SITE EXTRAVASATION [None]
  - INJECTION SITE HAEMORRHAGE [None]
  - PRODUCT QUALITY ISSUE [None]
  - MERALGIA PARAESTHETICA [None]
  - HYPOAESTHESIA [None]
  - WOUND [None]
  - INJECTION SITE DISCOLOURATION [None]
  - INJECTION SITE REACTION [None]
  - CONTUSION [None]
  - INJECTION SITE SCAR [None]
  - DRUG ADMINISTRATION ERROR [None]
  - INJECTION SITE HAEMATOMA [None]
